FAERS Safety Report 6172895-5 (Version None)
Quarter: 2009Q2

REPORT INFORMATION
  Report Type: 
  Country: None (occurrence: None)
  Receive Date: 20090428
  Receipt Date: 20090421
  Transmission Date: 20091009
  Serious: Yes (Other)
  Sender: FDA-Public Use
  Company Number: WAES 0904USA03505

PATIENT
  Age: 80 Year
  Sex: Female

DRUGS (5)
  1. HYZAAR [Suspect]
     Indication: HYPERTENSION
     Dosage: 1 DOSE/DAILY PO
     Route: 048
     Dates: start: 20070806
  2. NORVASC [Suspect]
     Indication: HYPERTENSION
     Dosage: 5 MG/DAILY PO
     Route: 048
     Dates: start: 20070806
  3. LASIX [Suspect]
     Indication: HYPERTENSION
     Dosage: 20 MG/DAILY PO
     Route: 048
     Dates: start: 20080510
  4. AMARYL [Suspect]
     Indication: DIABETES MELLITUS
     Dosage: 1 MG/DAILY PO
     Route: 048
     Dates: start: 20071120
  5. LANTUS [Concomitant]

REACTIONS (3)
  - BLOOD CREATININE INCREASED [None]
  - BLOOD UREA INCREASED [None]
  - BLOOD URIC ACID INCREASED [None]
